FAERS Safety Report 6208432-6 (Version None)
Quarter: 2009Q2

REPORT INFORMATION
  Report Type: 
  Country: None (occurrence: None)
  Receive Date: 20090529
  Receipt Date: 20090526
  Transmission Date: 20091009
  Serious: No
  Sender: FDA-Public Use
  Company Number: US-JNJFOC-20090506493

PATIENT
  Sex: Female
  Weight: 52.16 kg

DRUGS (2)
  1. DURAGESIC-100 [Suspect]
     Indication: FIBROMYALGIA
     Route: 062
  2. VICODIN [Concomitant]
     Indication: BREAKTHROUGH PAIN
     Route: 048

REACTIONS (1)
  - DRUG ADMINISTERED AT INAPPROPRIATE SITE [None]
